FAERS Safety Report 9661282 (Version 1)
Quarter: 2013Q4

REPORT INFORMATION
  Report Type: Spontaneous
  Country: US (occurrence: None)
  Receive Date: 20131030
  Receipt Date: 20131030
  Transmission Date: 20140711
  Serious: Yes (Hospitalization)
  Sender: FDA-Public Use
  Company Number: UTC-039684

PATIENT
  Age: 47 Year
  Sex: Female
  Weight: 150 kg

DRUGS (4)
  1. REMODULIN [Suspect]
     Indication: PULMONARY ARTERIAL HYPERTENSION
     Dosage: (0.056 UG/KG, 1 IN 1 MIN.
     Route: 058
     Dates: start: 20121228
  2. TRACLEER (BOSENTAN) [Concomitant]
  3. VIAGRA (SILDENAFIL) [Concomitant]
  4. COUMADIN (WARFARIN SODIUM) [Concomitant]

REACTIONS (5)
  - Pneumonia [None]
  - Upper respiratory tract infection [None]
  - Infusion site swelling [None]
  - Drug hypersensitivity [None]
  - Infusion site erythema [None]
